FAERS Safety Report 7226516-0 (Version None)
Quarter: 2011Q1

REPORT INFORMATION
  Report Type: 
  Country: None (occurrence: None)
  Receive Date: 20110114
  Receipt Date: 20110105
  Transmission Date: 20110831
  Serious: Yes (Life-Threatening, Hospitalization)
  Sender: FDA-Public Use
  Company Number: JP-JNJFOC-20110102564

PATIENT
  Age: 10 Year
  Sex: Male
  Weight: 35.3 kg

DRUGS (7)
  1. REMICADE [Suspect]
     Indication: INFLAMMATORY BOWEL DISEASE
     Dosage: INFUSIONS 1 TO 6
     Route: 042
  2. AZANIN [Suspect]
  3. AZANIN [Suspect]
     Indication: INFLAMMATORY BOWEL DISEASE
  4. 5 AMINOSALICYLIC ACID [Concomitant]
     Indication: INFLAMMATORY BOWEL DISEASE
     Route: 048
  5. REMICADE [Suspect]
     Dosage: 7TH INFUSION
     Route: 042
  6. AZANIN [Suspect]
  7. PREDNISOLONE [Concomitant]
     Indication: INFLAMMATORY BOWEL DISEASE
     Route: 048

REACTIONS (3)
  - NEPHROLITHIASIS [None]
  - SEPSIS [None]
  - COLITIS [None]
